FAERS Safety Report 5826756-9 (Version None)
Quarter: 2008Q3

REPORT INFORMATION
  Report Type: 
  Country: None (occurrence: None)
  Receive Date: 20080728
  Receipt Date: 20080728
  Transmission Date: 20090109
  Serious: Yes (Disabling)
  Sender: FDA-Public Use
  Company Number: None

PATIENT
  Age: 62 Year
  Sex: Female
  Weight: 63.5036 kg

DRUGS (2)
  1. LEVAQUIN [Suspect]
     Indication: COUGH
     Dosage: 1 PER DAY PO
     Route: 048
     Dates: start: 20080606, end: 20080610
  2. LEVAQUIN [Suspect]
     Indication: NASOPHARYNGITIS
     Dosage: 1 PER DAY PO
     Route: 048
     Dates: start: 20080606, end: 20080610

REACTIONS (4)
  - ACTIVITIES OF DAILY LIVING IMPAIRED [None]
  - MUSCULAR WEAKNESS [None]
  - MUSCULOSKELETAL PAIN [None]
  - TENDONITIS [None]
